FAERS Safety Report 9008631 (Version 2)
Quarter: 2013Q1

REPORT INFORMATION
  Report Type: Spontaneous
  Country: IT (occurrence: IT)
  Receive Date: 20130111
  Receipt Date: 20130123
  Transmission Date: 20140127
  Serious: Yes (Hospitalization, Other)
  Sender: FDA-Public Use
  Company Number: IT-BRISTOL-MYERS SQUIBB COMPANY-17261272

PATIENT
  Age: 84 Year
  Sex: Male

DRUGS (8)
  1. COUMADIN TABS 5 MG [Suspect]
     Dosage: 1DF=1DOSAGE UNIT,INTERRUPTED ON 19-SEP-2012.
     Route: 048
  2. AMIODARONE HCL [Concomitant]
     Route: 048
  3. FUROSEMIDE [Concomitant]
     Route: 048
  4. ENALAPRIL MALEATE [Concomitant]
     Route: 048
  5. BISOPROLOL HEMIFUMARATE [Concomitant]
     Route: 048
  6. ALLOPURINOL [Concomitant]
  7. RANEXA [Concomitant]
     Dosage: 1DF=375MG TABLETS^ 2 DOSAGE UNIT/ORALLY
     Route: 048
  8. NITRODERM TTS [Concomitant]
     Dosage: 10MG/DIE/PATCHES 1 DOSAGE UNIT TRANSDERMAL.
     Route: 062

REACTIONS (4)
  - Asthenia [Recovered/Resolved]
  - Anaemia [Recovered/Resolved]
  - International normalised ratio increased [Unknown]
  - Haemorrhage [Unknown]
